FAERS Safety Report 9429042 (Version 1)
Quarter: 2013Q3

REPORT INFORMATION
  Report Type: Spontaneous
  Country: US (occurrence: US)
  Receive Date: 20130730
  Receipt Date: 20130730
  Transmission Date: 20140515
  Serious: No
  Sender: FDA-Public Use
  Company Number: US-ABBOTT-13P-163-1042322-00

PATIENT
  Age: 74 Year
  Sex: Male
  Weight: 94.43 kg

DRUGS (8)
  1. NIASPAN (COATED) [Suspect]
     Indication: BLOOD CHOLESTEROL INCREASED
     Dates: start: 201212
  2. ASPIRIN [Concomitant]
     Indication: PRODUCT USED FOR UNKNOWN INDICATION
  3. METFORMIN [Concomitant]
     Indication: DIABETES MELLITUS
  4. LEXAPRO [Concomitant]
     Indication: DEPRESSION
  5. DIOVAN [Concomitant]
     Indication: HYPERTENSION
  6. BETA-OPTICS EYE DROPS [Concomitant]
     Indication: GLAUCOMA
  7. LOMAGAN EYE GTTS [Concomitant]
     Indication: GLAUCOMA
  8. LIPITOR [Concomitant]
     Indication: BLOOD CHOLESTEROL INCREASED

REACTIONS (1)
  - Epistaxis [Recovered/Resolved]
